FAERS Safety Report 9867289 (Version 1)
Quarter: 2014Q1

REPORT INFORMATION
  Report Type: Spontaneous
  Country: US (occurrence: None)
  Receive Date: 20140131
  Receipt Date: 20140131
  Transmission Date: 20141002
  Serious: Yes (Death)
  Sender: FDA-Public Use
  Company Number: 2014AP000344

PATIENT
  Age: 40 Year
  Sex: Female

DRUGS (4)
  1. MIRTAZAPINE TABLETS [Suspect]
  2. GABAPENTIN [Suspect]
  3. ACETIC ACID [Suspect]
  4. CLONAZEPAM TABLETS, USP [Suspect]

REACTIONS (2)
  - Completed suicide [None]
  - Toxicity to various agents [None]
